FAERS Safety Report 19618157 (Version 1)
Quarter: 2021Q3

REPORT INFORMATION
  Report Type: Spontaneous
  Country: US (occurrence: US)
  Receive Date: 20210727
  Receipt Date: 20210727
  Transmission Date: 20211014
  Serious: No
  Sender: FDA-Public Use
  Company Number: US-ROCHE-2735017

PATIENT
  Age: 65 Year
  Sex: Female

DRUGS (19)
  1. XGEVA [Concomitant]
     Active Substance: DENOSUMAB
     Dosage: DOSE LAST GIVEN 10/12 AND ON HOLD DUE TO DENTAL ISSUES.
     Route: 058
  2. FAMOTIDINE. [Concomitant]
     Active Substance: FAMOTIDINE
  3. GABAPENTIN. [Concomitant]
     Active Substance: GABAPENTIN
  4. XANAX [Concomitant]
     Active Substance: ALPRAZOLAM
  5. ABEMACICLIB [Concomitant]
     Active Substance: ABEMACICLIB
  6. LETROZOLE. [Concomitant]
     Active Substance: LETROZOLE
     Indication: METASTASES TO BONE
  7. FASLODEX [Concomitant]
     Active Substance: FULVESTRANT
  8. XELODA [Suspect]
     Active Substance: CAPECITABINE
     Dosage: LOWER DOSE
     Route: 048
     Dates: start: 20201205
  9. SIMVASTATIN. [Concomitant]
     Active Substance: SIMVASTATIN
  10. IBRANCE [Concomitant]
     Active Substance: PALBOCICLIB
  11. CITALOPRAM [Concomitant]
     Active Substance: CITALOPRAM HYDROBROMIDE
  12. PROCHLORPERAZINE MALEATE. [Concomitant]
     Active Substance: PROCHLORPERAZINE MALEATE
  13. NORCO [Concomitant]
     Active Substance: ACETAMINOPHEN\HYDROCODONE BITARTRATE
     Dosage: 5?325 MG
  14. PROCRIT [Concomitant]
     Active Substance: ERYTHROPOIETIN
  15. XELODA [Suspect]
     Active Substance: CAPECITABINE
     Indication: PRODUCT USED FOR UNKNOWN INDICATION
     Route: 048
     Dates: start: 202008
  16. VITAMIN D [ERGOCALCIFEROL] [Concomitant]
     Active Substance: ERGOCALCIFEROL
  17. FISH OIL [Concomitant]
     Active Substance: FISH OIL
  18. ZOLOFT [Concomitant]
     Active Substance: SERTRALINE HYDROCHLORIDE
  19. ZOFRAN [Concomitant]
     Active Substance: ONDANSETRON HYDROCHLORIDE

REACTIONS (2)
  - Tooth disorder [Unknown]
  - Palmar-plantar erythrodysaesthesia syndrome [Recovered/Resolved]

NARRATIVE: CASE EVENT DATE: 20200901
